FAERS Safety Report 13505863 (Version 1)
Quarter: 2017Q2

REPORT INFORMATION
  Report Type: Spontaneous
  Country: US (occurrence: US)
  Receive Date: 20170502
  Receipt Date: 20170502
  Transmission Date: 20170830
  Serious: No
  Sender: FDA-Public Use
  Company Number: US-ROCHE-1316173

PATIENT
  Age: 11 Year
  Sex: Female

DRUGS (1)
  1. BEVACIZUMAB [Suspect]
     Active Substance: BEVACIZUMAB
     Indication: OPTIC GLIOMA
     Dosage: EVERY 2 TO 3 WEEKS
     Route: 042

REACTIONS (1)
  - Hypertension [Recovered/Resolved]
